FAERS Safety Report 7633135-0 (Version None)
Quarter: 2011Q3

REPORT INFORMATION
  Report Type: 
  Country: None (occurrence: None)
  Receive Date: 20110725
  Receipt Date: 20110713
  Transmission Date: 20111222
  Serious: Yes (Death)
  Sender: FDA-Public Use
  Company Number: GB-UCBSA-037043

PATIENT
  Age: 65 Year
  Sex: Female

DRUGS (6)
  1. MORPHINE [Concomitant]
     Route: 062
  2. OMEPRAZOLE [Concomitant]
     Dosage: 20 MG
     Route: 048
  3. FUROSEMIDE [Concomitant]
     Dosage: 40 MG
     Route: 048
  4. CIMZIA [Suspect]
     Indication: RHEUMATOID ARTHRITIS
     Dosage: 200 MG
     Route: 058
     Dates: start: 20110610
  5. PREDNISOLONE [Concomitant]
     Dosage: 5 MG
     Route: 048
  6. AMITRIPTYLINE HCL [Concomitant]
     Dosage: 10 MG

REACTIONS (1)
  - DEATH [None]
